FAERS Safety Report 15172144 (Version 1)
Quarter: 2018Q3

REPORT INFORMATION
  Report Type: Spontaneous
  Country: US (occurrence: US)
  Receive Date: 20180622
  Receipt Date: 20180622
  Transmission Date: 20181010
  Serious: Yes (Life-Threatening, Disabling)
  Sender: FDA-Public Use
  Company Number: None

PATIENT
  Age: 63 Year
  Sex: Female
  Weight: 63 kg

DRUGS (8)
  1. VITAMIN C [Concomitant]
     Active Substance: ASCORBIC ACID
  2. LEVAQUIN [Suspect]
     Active Substance: LEVOFLOXACIN
     Indication: URINARY TRACT INFECTION
     Dosage: ?          QUANTITY:10 DF DOSAGE FORM;?
     Route: 048
  3. LVOXYL [Concomitant]
  4. CIPRO [Suspect]
     Active Substance: CIPROFLOXACIN HYDROCHLORIDE
     Indication: URINARY TRACT INFECTION
     Route: 042
  5. ZOLOFT [Concomitant]
     Active Substance: SERTRALINE HYDROCHLORIDE
  6. MAGNESIUM [Concomitant]
     Active Substance: MAGNESIUM
  7. PROBIOTICS [Concomitant]
     Active Substance: PROBIOTICS NOS
  8. SR MS [Concomitant]

REACTIONS (16)
  - Fatigue [None]
  - Abdominal pain upper [None]
  - Muscle spasms [None]
  - Toxicity to various agents [None]
  - Constipation [None]
  - Pain in extremity [None]
  - Nausea [None]
  - Bedridden [None]
  - Neuropathy peripheral [None]
  - Muscle twitching [None]
  - Sinus pain [None]
  - Disturbance in attention [None]
  - Nightmare [None]
  - Crying [None]
  - Vision blurred [None]
  - Respiratory disorder [None]

NARRATIVE: CASE EVENT DATE: 20170915
